FAERS Safety Report 18444678 (Version 1)
Quarter: 2020Q4

REPORT INFORMATION
  Report Type: Spontaneous
  Country: US (occurrence: US)
  Receive Date: 20201030
  Receipt Date: 20201030
  Transmission Date: 20210114
  Serious: No
  Sender: FDA-Public Use
  Company Number: US-GLAXOSMITHKLINE-US2020AMR210211

PATIENT
  Sex: Female

DRUGS (1)
  1. NUCALA [Suspect]
     Active Substance: MEPOLIZUMAB
     Indication: CHRONIC OBSTRUCTIVE PULMONARY DISEASE
     Dosage: 100 MG, CYC
     Route: 065
     Dates: start: 20161209

REACTIONS (4)
  - Asthma [Unknown]
  - Product use in unapproved indication [Unknown]
  - Pruritus [Unknown]
  - Multiple allergies [Unknown]
